FAERS Safety Report 25274780 (Version 2)
Quarter: 2025Q2

REPORT INFORMATION
  Report Type: Spontaneous
  Country: IN (occurrence: IN)
  Receive Date: 20250506
  Receipt Date: 20250521
  Transmission Date: 20250717
  Serious: Yes (Death)
  Sender: PFIZER
  Company Number: IN-PFIZER INC-PV202500009338

PATIENT
  Age: 78 Year
  Sex: Female

DRUGS (7)
  1. PALBOCICLIB [Suspect]
     Active Substance: PALBOCICLIB
     Indication: Breast cancer metastatic
     Route: 048
     Dates: start: 20211011, end: 20250430
  2. MEGASTY [Concomitant]
     Dosage: 160 MG, 1X/DAY
  3. LETROZOLE [Concomitant]
     Active Substance: LETROZOLE
     Dosage: 2.5 MG, 1X/DAY (OD)
  4. ULTRACET [Concomitant]
     Active Substance: ACETAMINOPHEN\TRAMADOL HYDROCHLORIDE
  5. CALCIROL XT [Concomitant]
     Dosage: 1 DF, 2X/DAY (BD)
  6. OSTEOFOS [Concomitant]
     Dosage: 70 MG, WEEKLY
  7. CYPEE [Concomitant]
     Dosage: 2 DF (2 TSP), 3X/DAY

REACTIONS (5)
  - Death [Fatal]
  - Heart rate increased [Unknown]
  - Haemoglobin decreased [Not Recovered/Not Resolved]
  - White blood cell count decreased [Not Recovered/Not Resolved]
  - Platelet count decreased [Recovering/Resolving]

NARRATIVE: CASE EVENT DATE: 20250318
